FAERS Safety Report 26009012 (Version 1)
Quarter: 2025Q4

REPORT INFORMATION
  Report Type: Report from Study
  Country: CO (occurrence: CO)
  Receive Date: 20251107
  Receipt Date: 20251107
  Transmission Date: 20260118
  Serious: Yes (Hospitalization)
  Sender: ABBVIE
  Company Number: CO-JNJFOC-20251039487

PATIENT
  Age: 72 Year
  Sex: Male
  Weight: 61 kg

DRUGS (1)
  1. IMBRUVICA [Suspect]
     Active Substance: IBRUTINIB
     Indication: Chronic lymphocytic leukaemia
     Dosage: EVERY OTHER DAY, LAST ADMIN DATE- 2025
     Route: 048
     Dates: start: 20250913

REACTIONS (3)
  - Pneumonitis [Unknown]
  - Off label use [Unknown]
  - Hypotension [Unknown]

NARRATIVE: CASE EVENT DATE: 20250928
